FAERS Safety Report 19468892 (Version 1)
Quarter: 2021Q2

REPORT INFORMATION
  Report Type: Spontaneous
  Country: GB (occurrence: GB)
  Receive Date: 20210628
  Receipt Date: 20210628
  Transmission Date: 20210717
  Serious: Yes (Other)
  Sender: FDA-Public Use
  Company Number: GB-TEVA-2021-GB-1926039

PATIENT

DRUGS (2)
  1. LORATADINE. [Suspect]
     Active Substance: LORATADINE
     Route: 065
  2. MODERNA COVID?19 VACCINE [Suspect]
     Active Substance: CX-024414
     Dosage: DOSE 1
     Route: 065
     Dates: start: 20210618

REACTIONS (3)
  - Swollen tongue [Recovered/Resolved]
  - Chest discomfort [Unknown]
  - Nausea [Unknown]

NARRATIVE: CASE EVENT DATE: 20210618
